FAERS Safety Report 20190943 (Version 6)
Quarter: 2022Q2

REPORT INFORMATION
  Report Type: Report from Study
  Country: IT (occurrence: IT)
  Receive Date: 20211216
  Receipt Date: 20220512
  Transmission Date: 20220720
  Serious: Yes (Hospitalization, Other)
  Sender: FDA-Public Use
  Company Number: IT-CELLTRION INC.-2021IT016802

PATIENT

DRUGS (65)
  1. RITUXIMAB [Suspect]
     Active Substance: RITUXIMAB
     Indication: Diffuse large B-cell lymphoma
     Dosage: 375 MG/M2, EVERY 3 WEEKS (ON 05/NOV/2021, SHE RECEIVED MOST RECENT DOSE 375 MG/M2 OF RITUXIMAB PRIOR
     Route: 041
     Dates: start: 20211015
  2. CYCLOPHOSPHAMIDE [Suspect]
     Active Substance: CYCLOPHOSPHAMIDE
     Indication: Diffuse large B-cell lymphoma
     Dosage: 750 MG/M2, EVERY 3 WEEKS (ON 05/NOV/2021, SHE RECEIVED MOST RECENT DOSE 750 MG/M2 OF CYCLOPHOSPHAMID
     Route: 042
     Dates: start: 20211015
  3. PREDNISONE [Suspect]
     Active Substance: PREDNISONE
     Indication: Diffuse large B-cell lymphoma
     Dosage: 100 MG, ON 09/NOV/2021, SHE RECEIVED MOST RECENT DOSE OF STUDY PREDNISONE PRIOR TO AE; ON 01/MAR/202
     Route: 048
     Dates: start: 20211016
  4. VINCRISTINE [Suspect]
     Active Substance: VINCRISTINE
     Indication: Diffuse large B-cell lymphoma
     Dosage: 2.8 MG/M2, EVERY 3 WEEKS (ON 05/NOV/2021, SHE RECEIVED MOST RECENT DOSE 1.4 MG/M2 OF VINCRISTINE PRI
     Route: 042
     Dates: start: 20211015
  5. DOXORUBICIN [Suspect]
     Active Substance: DOXORUBICIN
     Indication: Diffuse large B-cell lymphoma
     Dosage: 50 MG/M2, EVERY 3 WEEKS (ON 05/NOV/2021, SHE RECEIVED MOST RECENT DOSE 50 MG/M2 OF DOXORUBICIN PRIOR
     Route: 042
     Dates: start: 20211015
  6. GLOFITAMAB [Suspect]
     Active Substance: GLOFITAMAB
     Indication: Diffuse large B-cell lymphoma
     Dosage: 1.2 MG, EVERY 3 WEEKS (ON 12/NOV/2021, SHE RECEIVED MOST RECENT DOSE 1.2 MG OF GLOFITAMAB PRIOR TO S
     Route: 042
     Dates: start: 20211112
  7. GLOFITAMAB [Suspect]
     Active Substance: GLOFITAMAB
     Dosage: UNK
  8. METHYLPREDNISOLONE [Suspect]
     Active Substance: METHYLPREDNISOLONE
     Indication: Diffuse large B-cell lymphoma
     Dosage: 80 MG (ONGOING: NO; GIVEN FOR PROPHYLAXIS : YES)
     Route: 042
     Dates: start: 20211224, end: 20211224
  9. METHYLPREDNISOLONE [Suspect]
     Active Substance: METHYLPREDNISOLONE
     Dosage: 80 MG, ON 05/NOV/2021, SHE RECEIVED MOST RECENT DOSE OF METHYLPREDNISOLONE 80 MG PRIOR AE; ON 25/FEB
     Route: 048
     Dates: start: 20211015
  10. METHYLPREDNISOLONE [Suspect]
     Active Substance: METHYLPREDNISOLONE
     Dosage: 80 MG
     Route: 042
     Dates: start: 20211203, end: 20211203
  11. ACETAMINOPHEN [Concomitant]
     Active Substance: ACETAMINOPHEN
     Indication: Premedication
     Dosage: 1000 MG (GIVEN FOR PROPHYLAXIS)
     Route: 048
     Dates: start: 20211015, end: 20211015
  12. ACETAMINOPHEN [Concomitant]
     Active Substance: ACETAMINOPHEN
     Dosage: 1000 MG
     Route: 048
     Dates: start: 20220304, end: 20220304
  13. ACETAMINOPHEN [Concomitant]
     Active Substance: ACETAMINOPHEN
     Dosage: 1000 MG (ONGOING NO, GIVEN FOR PROPHYLAXIS YES)
     Route: 048
     Dates: start: 20220121, end: 20220121
  14. ACETAMINOPHEN [Concomitant]
     Active Substance: ACETAMINOPHEN
     Dosage: 1000 MG
     Route: 048
     Dates: start: 20211112, end: 20211112
  15. ACETAMINOPHEN [Concomitant]
     Active Substance: ACETAMINOPHEN
     Dosage: 1000 MG
     Route: 048
     Dates: start: 20211203, end: 20211203
  16. ACETAMINOPHEN [Concomitant]
     Active Substance: ACETAMINOPHEN
     Dosage: 1000 MG (ONGOING NO; GIVEN FOR PROPHYLAXIS YES)
     Route: 048
     Dates: start: 20211231, end: 20211231
  17. ACETAMINOPHEN [Concomitant]
     Active Substance: ACETAMINOPHEN
     Dosage: 1000 MG (ONGOING NO; GIVEN FOR PROPHYLAXIS YES)
     Route: 048
     Dates: start: 20211224, end: 20211224
  18. ACETAMINOPHEN [Concomitant]
     Active Substance: ACETAMINOPHEN
     Dosage: 1000 MG (ONGOING NO; GIVEN FOR PROPHYLAXIS YES)
     Route: 048
     Dates: start: 20211210, end: 20211210
  19. ACETAMINOPHEN [Concomitant]
     Active Substance: ACETAMINOPHEN
     Dosage: 1000 MG (ONGOING NO; GIVEN FOR PROPHYLAXIS YES)
     Route: 048
     Dates: start: 20220114, end: 20220114
  20. ACETAMINOPHEN [Concomitant]
     Active Substance: ACETAMINOPHEN
     Dosage: 1000 MG
     Route: 048
     Dates: start: 20220225, end: 20220225
  21. ACETAMINOPHEN [Concomitant]
     Active Substance: ACETAMINOPHEN
     Dosage: 1000 MG
     Route: 048
     Dates: start: 20211105, end: 20211105
  22. ACETAMINOPHEN [Concomitant]
     Active Substance: ACETAMINOPHEN
     Dosage: 1000 MG
     Route: 048
     Dates: start: 20211123, end: 20211123
  23. DEXAMETHASONE [Concomitant]
     Active Substance: DEXAMETHASONE
     Indication: Cytokine release syndrome
     Dosage: 20 MG (ONGOING: NO; GIVEN FOR PROPHYLAXIS: YES)
     Route: 042
     Dates: start: 20211231, end: 20211231
  24. DEXAMETHASONE [Concomitant]
     Active Substance: DEXAMETHASONE
     Indication: Prophylaxis
     Dosage: 20 MG (ONGOING: NO; GIVEN FOR PROPHYLAXIS: YES)
     Route: 042
     Dates: start: 20211210, end: 20211210
  25. DEXAMETHASONE [Concomitant]
     Active Substance: DEXAMETHASONE
     Dosage: 20 MG
     Route: 042
     Dates: start: 20211112, end: 20211112
  26. DEXAMETHASONE [Concomitant]
     Active Substance: DEXAMETHASONE
     Dosage: 20 MG
     Route: 042
     Dates: start: 20220304, end: 20220304
  27. DEXAMETHASONE [Concomitant]
     Active Substance: DEXAMETHASONE
     Dosage: 20 MG
     Route: 042
     Dates: start: 20211123, end: 20211123
  28. DEXAMETHASONE [Concomitant]
     Active Substance: DEXAMETHASONE
     Dosage: 20 MG (ONGOING: NO; GIVEN FOR PROPHYLAXIS: YES)
     Route: 042
     Dates: start: 20220121, end: 20220121
  29. DEXAMETHASONE [Concomitant]
     Active Substance: DEXAMETHASONE
     Dosage: UNK
     Dates: start: 20211124, end: 20211124
  30. CHLORPHENIRAMINE MALEATE [Concomitant]
     Active Substance: CHLORPHENIRAMINE MALEATE
     Indication: Premedication
     Dosage: 10 MG
     Route: 042
     Dates: start: 20220225, end: 20220225
  31. CHLORPHENIRAMINE MALEATE [Concomitant]
     Active Substance: CHLORPHENIRAMINE MALEATE
     Dosage: 10 MG (ONGOING: NO, GIVEN FOR PROPHYLAXIS: YES)
     Route: 042
     Dates: start: 20211231, end: 20211231
  32. CHLORPHENIRAMINE MALEATE [Concomitant]
     Active Substance: CHLORPHENIRAMINE MALEATE
     Dosage: 10 MG (ONGOING: NO, GIVEN FOR PROPHYLAXIS: YES)
     Route: 042
     Dates: start: 20211210, end: 20211210
  33. CHLORPHENIRAMINE MALEATE [Concomitant]
     Active Substance: CHLORPHENIRAMINE MALEATE
     Dosage: 10 MG
     Route: 042
     Dates: start: 20211112, end: 20211112
  34. CHLORPHENIRAMINE MALEATE [Concomitant]
     Active Substance: CHLORPHENIRAMINE MALEATE
     Dosage: 10 MG (ONGOING: NO, GIVEN FOR PROPHYLAXIS: YES)
     Route: 042
     Dates: start: 20211224, end: 20211224
  35. CHLORPHENIRAMINE MALEATE [Concomitant]
     Active Substance: CHLORPHENIRAMINE MALEATE
     Dosage: 10 MG
     Route: 042
     Dates: start: 20220121, end: 20220121
  36. CHLORPHENIRAMINE MALEATE [Concomitant]
     Active Substance: CHLORPHENIRAMINE MALEATE
     Dosage: 10 MG
     Route: 042
     Dates: start: 20211203, end: 20211203
  37. CHLORPHENIRAMINE MALEATE [Concomitant]
     Active Substance: CHLORPHENIRAMINE MALEATE
     Dosage: 10 MG
     Route: 042
     Dates: start: 20211123, end: 20211123
  38. CHLORPHENIRAMINE MALEATE [Concomitant]
     Active Substance: CHLORPHENIRAMINE MALEATE
     Dosage: 10 MG
     Route: 042
     Dates: start: 20211105, end: 20211105
  39. CHLORPHENIRAMINE MALEATE [Concomitant]
     Active Substance: CHLORPHENIRAMINE MALEATE
     Dosage: 10 MG (GIVEN FOR PROPHYLAXIS)
     Route: 042
     Dates: start: 20211015, end: 20211015
  40. CHLORPHENIRAMINE MALEATE [Concomitant]
     Active Substance: CHLORPHENIRAMINE MALEATE
     Dosage: 10 MG
     Route: 042
     Dates: start: 20220114, end: 20220114
  41. METOPROLOL [Concomitant]
     Active Substance: METOPROLOL
     Indication: Sinus tachycardia
     Dosage: NO
     Dates: start: 20211112, end: 20211112
  42. BISOPROLOL [Concomitant]
     Active Substance: BISOPROLOL
     Indication: Sinus tachycardia
     Dosage: UNK
     Dates: start: 20211118
  43. BISOPROLOL [Concomitant]
     Active Substance: BISOPROLOL
     Dosage: UNK
     Dates: start: 20211113, end: 20211116
  44. ZARXIO [Concomitant]
     Active Substance: FILGRASTIM-SNDZ
     Indication: Prophylaxis
     Dosage: ONGOING: NO
     Dates: start: 20211107, end: 20211109
  45. CHOLECALCIFEROL [Concomitant]
     Active Substance: CHOLECALCIFEROL
     Dosage: ONGOING: YES
     Dates: start: 20211104
  46. LASIX [Concomitant]
     Active Substance: FUROSEMIDE
     Indication: Oedema peripheral
     Dosage: ONGOING: YES
     Dates: start: 20211209
  47. PREDNISONE [Concomitant]
     Active Substance: PREDNISONE
     Dosage: ONGOING: YES
     Dates: start: 20210928
  48. MYCOSTATIN [Concomitant]
     Active Substance: NYSTATIN
     Dosage: ONGOING: YES
     Dates: start: 20211104
  49. FILGRASTIM [Concomitant]
     Active Substance: FILGRASTIM
     Indication: Prophylaxis
     Dosage: ONGOING: NO
     Dates: start: 20211020, end: 20211022
  50. FILGRASTIM [Concomitant]
     Active Substance: FILGRASTIM
     Dosage: ONGOING: NO
     Dates: start: 20211206, end: 20211208
  51. FILGRASTIM [Concomitant]
     Active Substance: FILGRASTIM
     Dosage: ONGOING: NO
     Dates: start: 20211211, end: 20211212
  52. FILGRASTIM [Concomitant]
     Active Substance: FILGRASTIM
     Dosage: ONGOING: NO
     Dates: start: 20220101, end: 20220103
  53. FILGRASTIM [Concomitant]
     Active Substance: FILGRASTIM
     Dosage: UNK
     Dates: start: 20220116
  54. ALLOPURINOL [Concomitant]
     Active Substance: ALLOPURINOL
     Dosage: ONGOING: YES
     Dates: start: 20210928
  55. ERYTHROPOIETIN [Concomitant]
     Active Substance: ERYTHROPOIETIN
     Indication: Anaemia
     Dosage: UNK
     Route: 065
     Dates: start: 20211202, end: 20220303
  56. PANTOPRAZOLE SODIUM [Concomitant]
     Active Substance: PANTOPRAZOLE SODIUM
     Indication: Gastrointestinal disorder prophylaxis
     Dosage: ONGOING: YES
     Dates: start: 20210928
  57. BACTRIM [Concomitant]
     Active Substance: SULFAMETHOXAZOLE\TRIMETHOPRIM
     Dosage: ONGOING: YES
     Dates: start: 20211015
  58. ONDANSETRON [Concomitant]
     Active Substance: ONDANSETRON
     Dosage: 8 MG
     Route: 042
     Dates: start: 20220225, end: 20220225
  59. FENTANYL [Concomitant]
     Active Substance: FENTANYL
     Dosage: ONGOING: YES
     Dates: start: 20210928
  60. FENTANYL [Concomitant]
     Active Substance: FENTANYL
     Dosage: UNK
     Dates: start: 20220210
  61. METHYLPREDNISOLONE [Concomitant]
     Active Substance: METHYLPREDNISOLONE
     Dosage: 80 MG
     Route: 042
     Dates: start: 20210114, end: 20220114
  62. LYRICA [Concomitant]
     Active Substance: PREGABALIN
     Dosage: UNK
     Dates: start: 20220214, end: 20220303
  63. CHLORPHENIRAMINE MALEATE [Concomitant]
     Active Substance: CHLORPHENIRAMINE MALEATE
     Dosage: 10 MG
     Route: 042
     Dates: start: 20220304, end: 20220304
  64. ONDANSETRON [Concomitant]
     Active Substance: ONDANSETRON
     Dosage: 8 MG, ONGOING: NO, GIVEN FOR PROPHYLAXIS : YES
     Route: 042
     Dates: start: 20211224, end: 20211224
  65. ONDANSETRON [Concomitant]
     Active Substance: ONDANSETRON
     Dosage: 8 MG, ONGOING: NO, GIVEN FOR PROPHYLAXIS : YES
     Route: 042
     Dates: start: 20220114, end: 20220114

REACTIONS (3)
  - Sinus tachycardia [Recovered/Resolved]
  - Neutropenia [Recovered/Resolved]
  - Neutropenia [Recovered/Resolved]

NARRATIVE: CASE EVENT DATE: 20211112
